FAERS Safety Report 13666899 (Version 1)
Quarter: 2017Q2

REPORT INFORMATION
  Report Type: Spontaneous
  Country: US (occurrence: US)
  Receive Date: 20170619
  Receipt Date: 20170619
  Transmission Date: 20170830
  Serious: No
  Sender: FDA-Public Use
  Company Number: US-ROCHE-1170562

PATIENT
  Sex: Male

DRUGS (2)
  1. XELODA [Suspect]
     Active Substance: CAPECITABINE
     Indication: GASTRIC CANCER
  2. XELODA [Suspect]
     Active Substance: CAPECITABINE
     Indication: THYROID CANCER
     Route: 065
     Dates: start: 20121203

REACTIONS (3)
  - Pain in extremity [Not Recovered/Not Resolved]
  - Oral disorder [Unknown]
  - Nail growth abnormal [Not Recovered/Not Resolved]
